FAERS Safety Report 25813069 (Version 2)
Quarter: 2025Q3

REPORT INFORMATION
  Report Type: Spontaneous
  Country: US (occurrence: US)
  Receive Date: 20250917
  Receipt Date: 20250918
  Transmission Date: 20251020
  Serious: No
  Sender: CHATTEM
  Company Number: US-OPELLA-2025OHG027826

PATIENT
  Sex: Male

DRUGS (1)
  1. ALLEGRA-D 24 HOUR [Suspect]
     Active Substance: FEXOFENADINE HYDROCHLORIDE\PSEUDOEPHEDRINE HYDROCHLORIDE
     Indication: Product used for unknown indication

REACTIONS (2)
  - Mucosal dryness [Unknown]
  - Nasal discomfort [Unknown]
